FAERS Safety Report 6484669-6 (Version None)
Quarter: 2009Q4

REPORT INFORMATION
  Report Type: 
  Country: None (occurrence: None)
  Receive Date: 20091209
  Receipt Date: 20091201
  Transmission Date: 20100525
  Serious: Yes (Death)
  Sender: FDA-Public Use
  Company Number: FR-SANOFI-AVENTIS-200821579GDDC

PATIENT
  Age: 70 Year
  Sex: Male

DRUGS (6)
  1. LENOGRASTIM [Suspect]
     Indication: NEUTROPENIA
     Route: 058
     Dates: start: 20080210, end: 20080212
  2. ELOXATIN [Suspect]
     Dosage: DOSE UNIT: 234 MG
     Route: 042
     Dates: start: 20080208, end: 20080208
  3. XELODA [Suspect]
     Route: 042
     Dates: start: 20080208, end: 20080220
  4. FARMORUBICINE [Suspect]
     Dosage: DOSE UNIT: 90 MG
     Route: 042
     Dates: start: 20080208, end: 20080208
  5. ATORVASTATIN CALCIUM [Suspect]
     Indication: HYPERTENSION
     Dosage: DOSE AS USED: UNK
     Dates: end: 20080219
  6. VENLAFAXINE [Suspect]
     Indication: DEPRESSION
     Dosage: DOSE UNIT: 75 MG
     Dates: end: 20080221

REACTIONS (1)
  - RENAL FAILURE ACUTE [None]
